FAERS Safety Report 6199407-4 (Version None)
Quarter: 2009Q2

REPORT INFORMATION
  Report Type: 
  Country: None (occurrence: None)
  Receive Date: 20090519
  Receipt Date: 20090504
  Transmission Date: 20091009
  Serious: Yes (Death, Other)
  Sender: FDA-Public Use
  Company Number: 2009001370

PATIENT
  Age: 66 Year
  Sex: Male

DRUGS (2)
  1. ERLOTINIB (ERLOTINIB) (TABLET) (ERLOTINIB) [Suspect]
     Indication: NON-SMALL CELL LUNG CANCER
     Dosage: 150 MG, QD, ORAL
     Route: 048
     Dates: start: 20080327, end: 20080418
  2. OXYCODONE HCL [Concomitant]

REACTIONS (7)
  - DYSPNOEA [None]
  - HAEMOPTYSIS [None]
  - HYPOTENSION [None]
  - HYPOXIA [None]
  - MALIGNANT NEOPLASM PROGRESSION [None]
  - NON-SMALL CELL LUNG CANCER [None]
  - PNEUMONIA [None]
